FAERS Safety Report 10190050 (Version 1)
Quarter: 2014Q2

REPORT INFORMATION
  Report Type: Spontaneous
  Country: US (occurrence: US)
  Receive Date: 20140522
  Receipt Date: 20140522
  Transmission Date: 20141212
  Serious: Yes (Hospitalization)
  Sender: FDA-Public Use
  Company Number: PHHY2014US062397

PATIENT
  Age: 61 Year
  Sex: Female

DRUGS (8)
  1. CLOZAPINE [Suspect]
     Dosage: 700 MG, (100MG EACH MORNING AND 600MG AT BEDTIME)
  2. CLOZAPINE [Suspect]
     Dosage: 100 MG, QN
  3. CLONAZEPAM [Concomitant]
     Dosage: 0.5 MG, DAILY
  4. MIRTAZAPINE [Concomitant]
     Dosage: 7.5 MG, QN
  5. CEFTRIAXONE [Concomitant]
  6. VANCOMYCIN [Concomitant]
  7. ERTAPENEM [Concomitant]
     Dosage: UNK
  8. ERTAPENEM [Concomitant]
     Dosage: 1 G, DAILY
     Route: 042

REACTIONS (6)
  - Toxicity to various agents [Unknown]
  - Somnolence [Unknown]
  - Confusional state [Unknown]
  - Sedation [Unknown]
  - Delirium [Unknown]
  - Drug level increased [Unknown]
